FAERS Safety Report 5127591-X (Version None)
Quarter: 2006Q4

REPORT INFORMATION
  Report Type: 
  Country: None (occurrence: None)
  Receive Date: 20061011
  Receipt Date: 20060920
  Transmission Date: 20070319
  Serious: No
  Sender: FDA-Public Use
  Company Number: E2090-00042-SPO-JP

PATIENT
  Sex: Female

DRUGS (5)
  1. ZONISAMIDE [Suspect]
     Indication: EPILEPSY
     Dosage: 100 MG, 1 IN 1 D, OTHER; 50 MG, 1 IN 1 D, PARENTERAL
     Dates: start: 20060630, end: 20060715
  2. DEPAKENE [Concomitant]
  3. MAGNESIUM OXIDE (MAGNESIUM OXIDE) [Concomitant]
  4. VALPROATE SODIUM [Concomitant]
  5. MUCOSAL (ACETYLCYSTEINE) [Concomitant]

REACTIONS (1)
  - NEPHROLITHIASIS [None]
